FAERS Safety Report 11789101 (Version 1)
Quarter: 2015Q4

REPORT INFORMATION
  Report Type: Spontaneous
  Country: US (occurrence: None)
  Receive Date: 20151130
  Receipt Date: 20151130
  Transmission Date: 20160305
  Serious: No
  Sender: FDA-Public Use
  Company Number: None

PATIENT
  Age: 65 Year
  Sex: Female
  Weight: 59.88 kg

DRUGS (9)
  1. COQ [Concomitant]
  2. LIPITOR [Suspect]
     Active Substance: ATORVASTATIN CALCIUM
     Indication: BLOOD CHOLESTEROL INCREASED
     Dosage: 1 PILL ONCE DAILY
     Route: 048
  3. VALTREX [Concomitant]
     Active Substance: VALACYCLOVIR HYDROCHLORIDE
  4. WELLBUTRIN [Concomitant]
     Active Substance: BUPROPION HYDROCHLORIDE
  5. VITAMIN D [Concomitant]
     Active Substance: CHOLECALCIFEROL
  6. LEXAPRO [Concomitant]
     Active Substance: ESCITALOPRAM OXALATE
  7. NIACIN. [Concomitant]
     Active Substance: NIACIN
  8. CALCIUM [Concomitant]
     Active Substance: CALCIUM
  9. CRANBERRY. [Concomitant]
     Active Substance: CRANBERRY

REACTIONS (4)
  - Myalgia [None]
  - Therapy cessation [None]
  - Neuropathy peripheral [None]
  - Blood glucose increased [None]

NARRATIVE: CASE EVENT DATE: 20151127
